FAERS Safety Report 6779309-2 (Version None)
Quarter: 2010Q2

REPORT INFORMATION
  Report Type: 
  Country: None (occurrence: None)
  Receive Date: 20100618
  Receipt Date: 20100607
  Transmission Date: 20101027
  Serious: Yes (Hospitalization)
  Sender: FDA-Public Use
  Company Number: PHHY2010JP35795

PATIENT
  Age: 58 Year
  Sex: Male

DRUGS (4)
  1. RASILEZ [Suspect]
     Indication: PROTEIN URINE
     Dosage: 150 MG, DAILY
     Route: 048
     Dates: start: 20100426, end: 20100526
  2. LASIX [Concomitant]
     Route: 048
  3. BREDININ [Concomitant]
     Dosage: 5 MG, UNK
     Route: 048
  4. MIZORIBINE [Concomitant]
     Dosage: 100 MG, UNK
     Route: 048
     Dates: end: 20100528

REACTIONS (4)
  - C-REACTIVE PROTEIN INCREASED [None]
  - CELLULITIS [None]
  - OEDEMA [None]
  - WHITE BLOOD CELL COUNT INCREASED [None]
